FAERS Safety Report 9657903 (Version 2)
Quarter: 2014Q3

REPORT INFORMATION
  Report Type: Spontaneous
  Country: US (occurrence: US)
  Receive Date: 20131030
  Receipt Date: 20140714
  Transmission Date: 20150326
  Serious: Yes (Hospitalization)
  Sender: FDA-Public Use
  Company Number: US-009507513-1310USA010179

PATIENT
  Sex: Female
  Weight: 77.98 kg

DRUGS (2)
  1. NUVARING [Suspect]
     Active Substance: ETHINYL ESTRADIOL\ETONOGESTREL
     Dosage: UNK
     Route: 067
     Dates: start: 200912, end: 20110111
  2. NUVARING [Suspect]
     Active Substance: ETHINYL ESTRADIOL\ETONOGESTREL
     Indication: CONTRACEPTION
     Dosage: UNK
     Route: 067
     Dates: start: 200310

REACTIONS (15)
  - Varicose vein [Unknown]
  - Leukocytosis [Recovered/Resolved]
  - Deep vein thrombosis [Recovered/Resolved]
  - Otitis media [Unknown]
  - Palpitations [Not Recovered/Not Resolved]
  - Respiratory tract congestion [Unknown]
  - Dyspnoea [Not Recovered/Not Resolved]
  - Vaginal infection [Not Recovered/Not Resolved]
  - Insulin resistance [Not Recovered/Not Resolved]
  - Syncope [Unknown]
  - Angiopathy [Not Recovered/Not Resolved]
  - Unintended pregnancy [Recovered/Resolved]
  - Hypoaesthesia [Unknown]
  - Hypoaesthesia [Unknown]
  - Post thrombotic syndrome [Unknown]

NARRATIVE: CASE EVENT DATE: 201101
